FAERS Safety Report 10160812 (Version 1)
Quarter: 2014Q2

REPORT INFORMATION
  Report Type: Spontaneous
  Country: US (occurrence: US)
  Receive Date: 20140508
  Receipt Date: 20140508
  Transmission Date: 20141212
  Serious: No
  Sender: FDA-Public Use
  Company Number: US-B.I. PHARMACEUTICALS,INC./RIDGEFIELD-2014-BI-19020BP

PATIENT
  Age: 55 Year
  Sex: Male
  Weight: 86 kg

DRUGS (1)
  1. PRADAXA [Suspect]
     Indication: ATRIAL FIBRILLATION
     Route: 048
     Dates: start: 201301

REACTIONS (3)
  - Laceration [Not Recovered/Not Resolved]
  - Contusion [Not Recovered/Not Resolved]
  - Haemorrhage [Not Recovered/Not Resolved]
